FAERS Safety Report 21914401 (Version 3)
Quarter: 2023Q1

REPORT INFORMATION
  Report Type: Spontaneous
  Country: GB (occurrence: None)
  Receive Date: 20230126
  Receipt Date: 20230203
  Transmission Date: 20230417
  Serious: Yes (Death, Other)
  Sender: FDA-Public Use
  Company Number: GB-MHRA-MED-202301221157185270-RGZVF

PATIENT
  Age: 61 Year
  Sex: Female

DRUGS (3)
  1. METHOTREXATE [Interacting]
     Active Substance: METHOTREXATE
     Indication: Psoriasis
     Route: 065
     Dates: start: 20100607, end: 20211207
  2. AMOXICILLIN [Interacting]
     Active Substance: AMOXICILLIN
     Indication: Cough
     Route: 065
     Dates: start: 20210809, end: 20210819
  3. FOLIC ACID [Concomitant]
     Active Substance: FOLIC ACID
     Indication: Psoriasis
     Route: 065

REACTIONS (9)
  - Product prescribing issue [Fatal]
  - Product communication issue [Fatal]
  - Drug interaction [Fatal]
  - Platelet count decreased [Fatal]
  - Haemoglobin decreased [Fatal]
  - Sepsis [Fatal]
  - Red blood cell count decreased [Fatal]
  - Multiple organ dysfunction syndrome [Fatal]
  - Acute myeloid leukaemia [Fatal]

NARRATIVE: CASE EVENT DATE: 20211226
